FAERS Safety Report 5807915-8 (Version None)
Quarter: 2008Q3

REPORT INFORMATION
  Report Type: 
  Country: None (occurrence: None)
  Receive Date: 20080711
  Receipt Date: 20080707
  Transmission Date: 20090109
  Serious: Yes (Other)
  Sender: FDA-Public Use
  Company Number: BR-PFIZER INC-2008041149

PATIENT
  Age: 59 Year
  Sex: Female
  Weight: 50 kg

DRUGS (4)
  1. FRONTAL XR [Suspect]
     Indication: ANXIETY
     Route: 048
  2. CARDIZEM [Suspect]
     Indication: BLOOD PRESSURE INCREASED
  3. SIMVASTATIN [Concomitant]
  4. LEXOTAN [Concomitant]
     Indication: ANXIETY

REACTIONS (6)
  - DIZZINESS [None]
  - HYPERTENSION [None]
  - HYPOTENSION [None]
  - NERVOUSNESS [None]
  - SOMNOLENCE [None]
  - WRONG TECHNIQUE IN DRUG USAGE PROCESS [None]
